FAERS Safety Report 9792524 (Version 1)
Quarter: 2014Q1

REPORT INFORMATION
  Report Type: Report from Study
  Country: US (occurrence: US)
  Receive Date: 20140102
  Receipt Date: 20140102
  Transmission Date: 20141002
  Serious: Yes (Other)
  Sender: FDA-Public Use
  Company Number: US-ABBVIE-13P-163-1184110-00

PATIENT
  Age: 48 Year
  Sex: Male
  Weight: 90.35 kg

DRUGS (13)
  1. HUMIRA [Suspect]
     Indication: RHEUMATOID ARTHRITIS
     Dates: start: 2011, end: 201307
  2. HUMIRA [Suspect]
     Route: 058
     Dates: start: 201309
  3. ATORVASTATIN [Concomitant]
     Indication: BLOOD CHOLESTEROL INCREASED
  4. HYDROXYCHOLORQUINE [Concomitant]
     Indication: RHEUMATOID ARTHRITIS
  5. NAPROXEN [Concomitant]
     Indication: RHEUMATOID ARTHRITIS
  6. NAPROXEN [Concomitant]
     Indication: OSTEONECROSIS
  7. HYDROCODONE [Concomitant]
     Indication: RHEUMATOID ARTHRITIS
     Dosage: 7.5/750 BID PRN
  8. HYDROCODONE [Concomitant]
     Indication: OSTEONECROSIS
  9. OXYCONTIN [Concomitant]
     Indication: RHEUMATOID ARTHRITIS
  10. OXYCONTIN [Concomitant]
     Indication: OSTEONECROSIS
  11. VIAGRA [Concomitant]
     Indication: PRODUCT USED FOR UNKNOWN INDICATION
  12. VITAMIN D NOS [Concomitant]
     Indication: VITAMIN D DEFICIENCY
     Dosage: 1.25/5000
  13. MULTIVITAMIN [Concomitant]
     Indication: VITAMIN SUPPLEMENTATION

REACTIONS (5)
  - Bone erosion [Not Recovered/Not Resolved]
  - Arthralgia [Not Recovered/Not Resolved]
  - Lyme disease [Recovered/Resolved]
  - Ligament rupture [Unknown]
  - Arthropod bite [Recovered/Resolved]
